FAERS Safety Report 11048223 (Version 1)
Quarter: 2015Q2

REPORT INFORMATION
  Report Type: Spontaneous
  Country: US (occurrence: US)
  Receive Date: 20150420
  Receipt Date: 20150420
  Transmission Date: 20150821
  Serious: Yes (Hospitalization)
  Sender: FDA-Public Use
  Company Number: US-SA-2015SA049588

PATIENT
  Age: 93 Year
  Sex: Female

DRUGS (2)
  1. LASIX [Suspect]
     Active Substance: FUROSEMIDE
     Indication: POLYURIA
     Route: 048
     Dates: start: 2013
  2. LASIX [Suspect]
     Active Substance: FUROSEMIDE
     Indication: POLYURIA
     Route: 048

REACTIONS (1)
  - Oedema peripheral [Not Recovered/Not Resolved]

NARRATIVE: CASE EVENT DATE: 201411
